FAERS Safety Report 8792145 (Version 2)
Quarter: 2015Q2

REPORT INFORMATION
  Report Type: Report from Study
  Country: US (occurrence: US)
  Receive Date: 20120918
  Receipt Date: 20150615
  Transmission Date: 20150821
  Serious: Yes (Death)
  Sender: FDA-Public Use
  Company Number: US-ROCHE-1128268

PATIENT
  Age: 65 Year
  Sex: Male
  Weight: 69.92 kg

DRUGS (12)
  1. BENADRYL [Concomitant]
     Active Substance: DIPHENHYDRAMINE HYDROCHLORIDE
     Route: 065
  2. CARBOPLATIN. [Concomitant]
     Active Substance: CARBOPLATIN
  3. DECADRON [Concomitant]
     Active Substance: DEXAMETHASONE
     Route: 042
  4. SANDOSTATIN LAR DEPOT [Concomitant]
     Active Substance: OCTREOTIDE ACETATE
     Route: 065
  5. AVASTIN [Suspect]
     Active Substance: BEVACIZUMAB
     Indication: BRAIN NEOPLASM MALIGNANT
     Route: 065
     Dates: start: 20060407
  6. TYLENOL [Concomitant]
     Active Substance: ACETAMINOPHEN
     Route: 048
  7. CPT-11 [Concomitant]
     Active Substance: IRINOTECAN
     Route: 065
  8. AVASTIN [Suspect]
     Active Substance: BEVACIZUMAB
     Route: 065
  9. CAMPTOSAR [Concomitant]
     Active Substance: IRINOTECAN HYDROCHLORIDE
  10. ALOXI [Concomitant]
     Active Substance: PALONOSETRON HYDROCHLORIDE
     Route: 042
  11. ATROPIN [Concomitant]
     Route: 042
  12. ATIVAN [Concomitant]
     Active Substance: LORAZEPAM

REACTIONS (3)
  - Death [Fatal]
  - Off label use [Unknown]
  - Protein urine present [Unknown]

NARRATIVE: CASE EVENT DATE: 20060716
